FAERS Safety Report 23200287 (Version 1)
Quarter: 2023Q4

REPORT INFORMATION
  Report Type: Spontaneous
  Country: US (occurrence: US)
  Receive Date: 20231118
  Receipt Date: 20231118
  Transmission Date: 20240110
  Serious: No
  Sender: FDA-Public Use
  Company Number: US-SA-SAC20231111000034

PATIENT
  Age: 55 Year
  Sex: Male

DRUGS (17)
  1. DUPIXENT [Suspect]
     Active Substance: DUPILUMAB
     Indication: Nasal polyps
     Dosage: 300 MG, QOW
     Route: 058
     Dates: start: 20221108
  2. ALBUTEROL SULFATE [Concomitant]
     Active Substance: ALBUTEROL SULFATE
  3. ATORVASTATIN [Concomitant]
     Active Substance: ATORVASTATIN
  4. AZITHROMYCIN [Concomitant]
     Active Substance: AZITHROMYCIN
  5. BENZONATATE [Concomitant]
     Active Substance: BENZONATATE
  6. BUDESONIDE [Concomitant]
     Active Substance: BUDESONIDE
  7. CLOBETASOL [Concomitant]
     Active Substance: CLOBETASOL
  8. FLUCONAZOLE [Concomitant]
     Active Substance: FLUCONAZOLE
  9. METFORMIN [Concomitant]
     Active Substance: METFORMIN HYDROCHLORIDE
  10. MONTELUKAST [Concomitant]
     Active Substance: MONTELUKAST SODIUM
  11. PANTOPRAZOLE [Concomitant]
     Active Substance: PANTOPRAZOLE
  12. QNASL [Concomitant]
     Active Substance: BECLOMETHASONE DIPROPIONATE
  13. SILDENAFIL [Concomitant]
     Active Substance: SILDENAFIL
  14. SYMBICORT [Concomitant]
     Active Substance: BUDESONIDE\FORMOTEROL FUMARATE DIHYDRATE
  15. TADALAFIL [Concomitant]
     Active Substance: TADALAFIL
  16. TESTOSTERONE [Concomitant]
     Active Substance: TESTOSTERONE
  17. VALACYCLOVIR [Concomitant]
     Active Substance: VALACYCLOVIR HYDROCHLORIDE

REACTIONS (2)
  - COVID-19 [Recovered/Resolved]
  - Drug ineffective [Unknown]

NARRATIVE: CASE EVENT DATE: 20231001
